FAERS Safety Report 14194198 (Version 1)
Quarter: 2017Q4

REPORT INFORMATION
  Report Type: Spontaneous
  Country: TR (occurrence: TR)
  Receive Date: 20171116
  Receipt Date: 20171116
  Transmission Date: 20180321
  Serious: Yes (Hospitalization)
  Sender: FDA-Public Use
  Company Number: TR-CIPLA LTD.-2017TR19231

PATIENT

DRUGS (2)
  1. TRIPTORELIN ACETATE [Concomitant]
     Active Substance: TRIPTORELIN ACETATE
     Dosage: UNK, MONTHLY
     Route: 058
  2. FLUTAMIDE. [Suspect]
     Active Substance: FLUTAMIDE
     Indication: PROSTATE CANCER METASTATIC
     Dosage: 250 MG, TID
     Route: 048

REACTIONS (1)
  - Acute kidney injury [Recovered/Resolved]
